FAERS Safety Report 7973013-0 (Version None)
Quarter: 2011Q4

REPORT INFORMATION
  Report Type: 
  Country: None (occurrence: None)
  Receive Date: 20111213
  Receipt Date: 20111207
  Transmission Date: 20120403
  Serious: Yes (Hospitalization)
  Sender: FDA-Public Use
  Company Number: US-VERTEX PHARMACEUTICALS INC.-AE-2011-004619

PATIENT
  Sex: Female

DRUGS (11)
  1. CALCIUM [Concomitant]
  2. MULTI-VITAMIN [Concomitant]
  3. WELLBUTRIN [Concomitant]
  4. ATIVAN [Concomitant]
  5. NEXIUM [Concomitant]
  6. IBUPROFEN (ADVIL) [Concomitant]
  7. VITAMIN D [Concomitant]
  8. CYANOCOBALAMIN [Concomitant]
  9. PEGASYS [Concomitant]
     Indication: HEPATITIS C
     Route: 058
  10. RIBASPHERE [Concomitant]
     Indication: HEPATITIS C
  11. INCIVEK [Suspect]
     Indication: HEPATITIS C
     Route: 048

REACTIONS (6)
  - ANAEMIA [None]
  - RASH [None]
  - PYREXIA [None]
  - DYSPNOEA [None]
  - DEHYDRATION [None]
  - CELLULITIS [None]
